FAERS Safety Report 8958707 (Version 1)
Quarter: 2012Q4

REPORT INFORMATION
  Report Type: 
  Country: DK (occurrence: DK)
  Receive Date: 20121212
  Receipt Date: 20121212
  Transmission Date: 20130627
  Serious: Yes (Other)
  Sender: FDA-Public Use
  Company Number: DK-TEVA-308924ISR

PATIENT
  Sex: Male

DRUGS (6)
  1. METHOTREXATE [Suspect]
     Indication: RHEUMATOID ARTHRITIS
     Dates: start: 20050118, end: 20051101
  2. METHOTREXATE [Suspect]
     Route: 030
     Dates: start: 20051129, end: 20051206
  3. METHOTREXATE [Suspect]
     Dates: start: 20051206, end: 20060110
  4. METHOTREXATE [Suspect]
     Route: 030
     Dates: end: 20060523
  5. METHOTREXATE [Suspect]
     Dates: end: 20070209
  6. METHOTREXATE [Suspect]
     Route: 030
     Dates: end: 20070212

REACTIONS (10)
  - Dizziness [Unknown]
  - Anaemia [Unknown]
  - Ataxia [Unknown]
  - Cerebral thrombosis [Unknown]
  - Hemiparesis [Unknown]
  - Iron deficiency [Unknown]
  - Balance disorder [Unknown]
  - Spinal osteoarthritis [Unknown]
  - Gliosis [Unknown]
  - Hemiplegia [Unknown]
